FAERS Safety Report 5819647-0 (Version None)
Quarter: 2008Q3

REPORT INFORMATION
  Report Type: 
  Country: None (occurrence: None)
  Receive Date: 20080723
  Receipt Date: 20080715
  Transmission Date: 20090109
  Serious: Yes (Hospitalization)
  Sender: FDA-Public Use
  Company Number: JP-BOEHRINGER INGELHEIM GMBH, GERMANY-2008-BP-05408YA

PATIENT
  Sex: Male
  Weight: 56 kg

DRUGS (10)
  1. TAMSULOSIN HCL [Suspect]
     Indication: BENIGN PROSTATIC HYPERPLASIA
     Route: 048
     Dates: start: 20071112, end: 20080404
  2. TAMSULOSIN HCL [Suspect]
     Indication: POLLAKIURIA
  3. CARVEDILOL [Suspect]
     Indication: HYPERTENSION
     Route: 048
     Dates: start: 20040310
  4. ENALAPRIL MALEATE [Suspect]
     Indication: HYPERTENSION
     Route: 048
     Dates: start: 20080318
  5. AMLODIPINE [Suspect]
     Indication: HYPERTENSION
     Route: 048
     Dates: start: 20070123
  6. ASPIRIN [Concomitant]
     Dates: start: 20040310
  7. OMEPRAL [Concomitant]
     Dates: start: 20040428
  8. WARFARIN SODIUM [Concomitant]
     Dates: start: 20040428
  9. MIGLITOL [Concomitant]
  10. SUNRYTHM [Concomitant]
     Dates: start: 20040407, end: 20080320

REACTIONS (3)
  - HYPOTENSION [None]
  - LOSS OF CONSCIOUSNESS [None]
  - SYNCOPE [None]
